FAERS Safety Report 6069613-8 (Version None)
Quarter: 2009Q1

REPORT INFORMATION
  Report Type: 
  Country: None (occurrence: None)
  Receive Date: 20090209
  Receipt Date: 20090202
  Transmission Date: 20090719
  Serious: Yes (Hospitalization)
  Sender: FDA-Public Use
  Company Number: US-BRISTOL-MYERS SQUIBB COMPANY-14491732

PATIENT
  Age: 66 Year
  Sex: Male
  Weight: 80 kg

DRUGS (3)
  1. CETUXIMAB [Suspect]
     Indication: LARYNGEAL CANCER
     Dosage: FIRST COURSE ON 23DEC08, 250MG/M2 IV OVER 60 MIN WEEKLY, TOTALLY 2332MG LAST ADM 14JAN09
     Route: 042
     Dates: start: 20081223, end: 20081223
  2. CISPLATIN [Suspect]
     Indication: LARYNGEAL CANCER
     Dosage: FIRST COURSE ON 23DEC08 1-2HRS ON DAYS 1 AND 22 OF TREATMENT COURSE
     Route: 042
     Dates: start: 20081230, end: 20081230
  3. RADIATION THERAPY [Suspect]
     Indication: LARYNGEAL CANCER
     Dosage: 1 DOSAGE FORM=2800 CGY, TYPE:EXTERNAL BEAM,IMRT NO OF FRACTIONS:14, NO OF ELAPSED DAYS:16
     Dates: start: 20090114, end: 20090114

REACTIONS (4)
  - DEHYDRATION [None]
  - DIZZINESS [None]
  - FIBRIN D DIMER INCREASED [None]
  - THROMBOSIS [None]
